FAERS Safety Report 26071134 (Version 2)
Quarter: 2025Q4

REPORT INFORMATION
  Report Type: Spontaneous
  Country: BR (occurrence: BR)
  Receive Date: 20251120
  Receipt Date: 20251127
  Transmission Date: 20260118
  Serious: Yes (Other)
  Sender: NOVARTIS
  Company Number: BR-002147023-NVSC2025BR178055

PATIENT

DRUGS (1)
  1. ASCIMINIB [Suspect]
     Active Substance: ASCIMINIB
     Indication: Product used for unknown indication
     Route: 065

REACTIONS (8)
  - Pancytopenia [Unknown]
  - Pericardial effusion [Unknown]
  - Cough [Unknown]
  - Fatigue [Unknown]
  - Pleural effusion [Unknown]
  - Periorbital oedema [Unknown]
  - Muscle spasms [Unknown]
  - Diarrhoea [Unknown]
